FAERS Safety Report 16248129 (Version 1)
Quarter: 2019Q2

REPORT INFORMATION
  Report Type: Spontaneous
  Country: US (occurrence: US)
  Receive Date: 20190428
  Receipt Date: 20190428
  Transmission Date: 20190711
  Serious: Yes (Hospitalization)
  Sender: FDA-Public Use
  Company Number: US-PRINSTON PHARMACEUTICAL INC.-2019PRN00439

PATIENT
  Age: 37 Year
  Sex: Female

DRUGS (3)
  1. DULOXETINE. [Suspect]
     Active Substance: DULOXETINE
     Indication: MAJOR DEPRESSION
     Dosage: 40 MG, 1X/DAY
     Route: 065
  2. DULOXETINE. [Suspect]
     Active Substance: DULOXETINE
     Indication: ANXIETY DISORDER
     Dosage: 60 MG, 1X/DAY
     Route: 065
  3. DULOXETINE. [Suspect]
     Active Substance: DULOXETINE
     Indication: PAIN

REACTIONS (6)
  - Anxiety [Recovered/Resolved]
  - Autonomic nervous system imbalance [Recovered/Resolved]
  - Tremor [Recovered/Resolved]
  - Hyperthermia [Recovered/Resolved]
  - Hyperhidrosis [Recovered/Resolved]
  - Drug-induced liver injury [Recovered/Resolved]
